FAERS Safety Report 25550000 (Version 1)
Quarter: 2025Q3

REPORT INFORMATION
  Report Type: Spontaneous
  Country: US (occurrence: None)
  Receive Date: 20250711
  Receipt Date: 20250711
  Transmission Date: 20251021
  Serious: Yes (Other)
  Sender: FDA-CTU
  Company Number: None

PATIENT
  Age: 66 Year
  Sex: Female
  Weight: 45.36 kg

DRUGS (3)
  1. MAVENCLAD [Suspect]
     Active Substance: CLADRIBINE
     Indication: Multiple sclerosis
     Dosage: FREQUENCY : DAILY;?
     Route: 048
  2. Atacand Oral Tablet 4 MG [Concomitant]
  3. Crestor Oral Tablet 10 MG [Concomitant]

REACTIONS (7)
  - Bladder dysfunction [None]
  - Gait disturbance [None]
  - Temperature intolerance [None]
  - Pain [None]
  - Balance disorder [None]
  - Fatigue [None]
  - Insomnia [None]

NARRATIVE: CASE EVENT DATE: 20250711
